FAERS Safety Report 24679077 (Version 3)
Quarter: 2024Q4

REPORT INFORMATION
  Report Type: Spontaneous
  Country: JP (occurrence: JP)
  Receive Date: 20241129
  Receipt Date: 20241231
  Transmission Date: 20250114
  Serious: Yes (Hospitalization, Other)
  Sender: ALEXION PHARMACEUTICALS
  Company Number: JP-ASTRAZENECA-240133684_013120_P_1

PATIENT
  Age: 70 Year

DRUGS (2)
  1. DURVALUMAB [Suspect]
     Active Substance: DURVALUMAB
     Indication: Non-small cell lung cancer
     Dosage: 1500 MILLIGRAM, Q3W
  2. TREMELIMUMAB [Suspect]
     Active Substance: TREMELIMUMAB
     Indication: Non-small cell lung cancer
     Dosage: 75 MILLIGRAM, Q3W

REACTIONS (5)
  - Rash [Recovered/Resolved]
  - Adrenal insufficiency [Recovered/Resolved]
  - Cholecystitis [Recovered/Resolved]
  - Cholangitis [Unknown]
  - Liver disorder [Unknown]
